FAERS Safety Report 6645662-3 (Version None)
Quarter: 2010Q1

REPORT INFORMATION
  Report Type: 
  Country: None (occurrence: None)
  Receive Date: 20100323
  Receipt Date: 20100316
  Transmission Date: 20100710
  Serious: Yes (Other)
  Sender: FDA-Public Use
  Company Number: US-SANOFI-AVENTIS-2010SA015509

PATIENT
  Sex: Female

DRUGS (2)
  1. LANTUS [Suspect]
     Dosage: DOSE:65 UNIT(S)
     Route: 058
     Dates: start: 20030101
  2. OPTICLICK [Suspect]
     Dates: start: 20030101

REACTIONS (4)
  - ASTHENIA [None]
  - DYSPHONIA [None]
  - INJECTION SITE HAEMATOMA [None]
  - LUNG NEOPLASM MALIGNANT [None]
